FAERS Safety Report 5337074-X (Version None)
Quarter: 2007Q2

REPORT INFORMATION
  Report Type: 
  Country: None (occurrence: None)
  Receive Date: 20070529
  Receipt Date: 20070523
  Transmission Date: 20071010
  Serious: Yes (Death)
  Sender: FDA-Public Use
  Company Number: US-BRISTOL-MYERS SQUIBB COMPANY-13779699

PATIENT
  Age: 47 Year
  Sex: Male

DRUGS (4)
  1. BMS477118 [Suspect]
     Indication: DIABETES MELLITUS NON-INSULIN-DEPENDENT
     Route: 048
     Dates: start: 20070321, end: 20070513
  2. BLINDED: PLACEBO [Suspect]
     Indication: DIABETES MELLITUS NON-INSULIN-DEPENDENT
     Route: 048
     Dates: start: 20070321, end: 20070513
  3. BENICAR HCT [Concomitant]
     Dates: start: 20070202
  4. CADUET [Concomitant]
     Dates: start: 20070214

REACTIONS (1)
  - SEPSIS [None]
